FAERS Safety Report 9448159 (Version 1)
Quarter: 2013Q3

REPORT INFORMATION
  Report Type: Spontaneous
  Country: US (occurrence: None)
  Receive Date: 20130807
  Receipt Date: 20130807
  Transmission Date: 20140515
  Serious: No
  Sender: FDA-Public Use
  Company Number: None

PATIENT
  Sex: 0

DRUGS (2)
  1. HCG [Suspect]
     Indication: WEIGHT DECREASED
  2. HCG [Suspect]

REACTIONS (1)
  - Wrong technique in drug usage process [None]
